FAERS Safety Report 5393311-7 (Version None)
Quarter: 2007Q3

REPORT INFORMATION
  Report Type: 
  Country: None (occurrence: None)
  Receive Date: 20070720
  Receipt Date: 20070720
  Transmission Date: 20080115
  Serious: No
  Sender: FDA-Public Use
  Company Number: None

PATIENT
  Age: 62 Year
  Sex: Female

DRUGS (2)
  1. VORICONAZOLE [Suspect]
  2. TACROLIMUS [Suspect]

REACTIONS (1)
  - PARANOIA [None]
